FAERS Safety Report 4985257-0 (Version None)
Quarter: 2006Q2

REPORT INFORMATION
  Report Type: 
  Country: None (occurrence: None)
  Receive Date: 20060427
  Receipt Date: 20060420
  Transmission Date: 20061013
  Serious: Yes (Hospitalization)
  Sender: FDA-Public Use
  Company Number: BE-MERCK-0604BEL00011

PATIENT
  Age: 81 Year
  Sex: Female

DRUGS (4)
  1. FOSAMAX [Suspect]
     Indication: OSTEOPOROSIS
     Route: 048
     Dates: start: 20030101
  2. FOSAMAX [Suspect]
     Route: 048
     Dates: start: 20060420, end: 20060420
  3. OMEPRAZOLE [Concomitant]
     Indication: OESOPHAGITIS
     Route: 048
  4. ATENOLOL [Concomitant]
     Indication: HYPERTENSION
     Route: 048

REACTIONS (4)
  - ACCIDENTAL OVERDOSE [None]
  - HIP FRACTURE [None]
  - INAPPROPRIATE SCHEDULE OF DRUG ADMINISTRATION [None]
  - NO ADVERSE EFFECT [None]
